FAERS Safety Report 25704872 (Version 1)
Quarter: 2025Q3

REPORT INFORMATION
  Report Type: Report from Study
  Country: US (occurrence: US)
  Receive Date: 20250820
  Receipt Date: 20250820
  Transmission Date: 20251021
  Serious: Yes (Other)
  Sender: MALLINCKRODT
  Company Number: US-MALLINCKRODT-MNK202504862

PATIENT
  Age: 62 Year
  Sex: Female
  Weight: 125 kg

DRUGS (1)
  1. CORTICOTROPIN [Suspect]
     Active Substance: CORTICOTROPIN
     Indication: Dry eye
     Route: 058

REACTIONS (9)
  - Syncope [Unknown]
  - Taste disorder [Unknown]
  - Disorientation [Unknown]
  - Confusional state [Unknown]
  - Blood glucose fluctuation [Unknown]
  - Dizziness [Unknown]
  - Fatigue [Unknown]
  - Asthenia [Unknown]
  - Euphoric mood [Unknown]
